FAERS Safety Report 11525707 (Version 8)
Quarter: 2016Q2

REPORT INFORMATION
  Report Type: Spontaneous
  Country: US (occurrence: US)
  Receive Date: 20150918
  Receipt Date: 20160614
  Transmission Date: 20160815
  Serious: Yes (Hospitalization, Other)
  Sender: FDA-Public Use
  Company Number: US-GLAXOSMITHKLINE-US2015GSK133534

PATIENT
  Age: 73 Year
  Sex: Male

DRUGS (10)
  1. VENTOLIN HFA [Suspect]
     Active Substance: ALBUTEROL SULFATE
     Indication: ASTHMA
     Dosage: 2 PUFF(S), QID
     Route: 065
  2. PREDNISONE. [Suspect]
     Active Substance: PREDNISONE
     Indication: PRODUCT USED FOR UNKNOWN INDICATION
  3. SPIRONOLACTONE. [Concomitant]
     Active Substance: SPIRONOLACTONE
  4. VENTOLIN HFA [Suspect]
     Active Substance: ALBUTEROL SULFATE
     Indication: DYSPNOEA
     Dosage: 2 PUFF(S), PRN
     Route: 055
     Dates: start: 1996
  5. ALBUTEROL/ATROVENT NEBULIZER [Concomitant]
  6. SIMVASTATIN. [Concomitant]
     Active Substance: SIMVASTATIN
  7. LISINOPRIL. [Concomitant]
     Active Substance: LISINOPRIL
  8. COREG [Concomitant]
     Active Substance: CARVEDILOL
  9. ASPIRIN. [Concomitant]
     Active Substance: ASPIRIN
  10. LORAZEPAM. [Concomitant]
     Active Substance: LORAZEPAM

REACTIONS (21)
  - Dyspnoea [Unknown]
  - Asthma [Unknown]
  - Rehabilitation therapy [Not Recovered/Not Resolved]
  - Chronic obstructive pulmonary disease [Unknown]
  - Chest pain [Recovered/Resolved]
  - Myocardial infarction [Recovered/Resolved]
  - Living in residential institution [Not Recovered/Not Resolved]
  - Asthenia [Unknown]
  - Pulmonary congestion [Unknown]
  - Coronary artery bypass [Unknown]
  - Coronary artery occlusion [Recovered/Resolved]
  - Cardiac disorder [Recovered/Resolved]
  - Blood immunoglobulin E decreased [Unknown]
  - Therapy cessation [Unknown]
  - Cardiac operation [Recovered/Resolved]
  - Atelectasis [Unknown]
  - Pleural effusion [Recovering/Resolving]
  - Aspiration pleural cavity [Unknown]
  - Nervousness [Unknown]
  - Tremor [Unknown]
  - Multiple allergies [Unknown]

NARRATIVE: CASE EVENT DATE: 20141226
